FAERS Safety Report 24108870 (Version 1)
Quarter: 2024Q3

REPORT INFORMATION
  Report Type: Report from Study
  Country: JP (occurrence: JP)
  Receive Date: 20240718
  Receipt Date: 20240718
  Transmission Date: 20241017
  Serious: Yes (Other)
  Sender: ROCHE
  Company Number: JP-ROCHE-10000026958

PATIENT

DRUGS (1)
  1. RITUXAN [Suspect]
     Active Substance: RITUXIMAB
     Indication: Congenital nephrotic syndrome
     Route: 042

REACTIONS (2)
  - Agranulocytosis [Unknown]
  - Hypogammaglobulinaemia [Unknown]
